FAERS Safety Report 10911297 (Version 1)
Quarter: 2015Q1

REPORT INFORMATION
  Report Type: Report from Study
  Country: BR (occurrence: BR)
  Receive Date: 20150313
  Receipt Date: 20150313
  Transmission Date: 20150721
  Serious: Yes (Death)
  Sender: FDA-Public Use
  Company Number: PHHY2015BR029875

PATIENT
  Sex: Female
  Weight: 49 kg

DRUGS (1)
  1. ACLASTA [Suspect]
     Active Substance: ZOLEDRONIC ACID
     Indication: OSTEOPOROSIS
     Dosage: 5 MG, UNK
     Route: 042

REACTIONS (3)
  - Head and neck cancer [Fatal]
  - Bone cancer [Fatal]
  - Lung neoplasm malignant [Fatal]
